FAERS Safety Report 14033928 (Version 1)
Quarter: 2017Q4

REPORT INFORMATION
  Report Type: Spontaneous
  Country: GB (occurrence: GB)
  Receive Date: 20171003
  Receipt Date: 20171003
  Transmission Date: 20180321
  Serious: Yes (Hospitalization)
  Sender: FDA-Public Use
  Company Number: GB-TEVA-809279ACC

PATIENT
  Age: 15 Year
  Sex: Female
  Weight: 44 kg

DRUGS (16)
  1. DOXORUBICINE [Concomitant]
     Active Substance: DOXORUBICIN
     Indication: OSTEOSARCOMA
     Dates: start: 20160905
  2. MAGNESIUM [Concomitant]
     Active Substance: MAGNESIUM
  3. NORTESTOSTERONE [Concomitant]
  4. NABILONE [Concomitant]
     Active Substance: NABILONE
  5. METHOTREXATE. [Suspect]
     Active Substance: METHOTREXATE
     Indication: OSTEOSARCOMA
     Dosage: 3 CYCLES RECEIVED. .
     Route: 051
     Dates: start: 20160905, end: 20161221
  6. METOCLOPRAMIDE. [Concomitant]
     Active Substance: METOCLOPRAMIDE
  7. PARACETAMOL [Concomitant]
     Active Substance: ACETAMINOPHEN
  8. TRAMADOL. [Concomitant]
     Active Substance: TRAMADOL
  9. CISPLATIN. [Concomitant]
     Active Substance: CISPLATIN
     Indication: OSTEOSARCOMA
     Dates: start: 20160905
  10. IBUPROFEN. [Concomitant]
     Active Substance: IBUPROFEN
  11. MORPHINE [Concomitant]
     Active Substance: MORPHINE
  12. POTASSIUM [Concomitant]
     Active Substance: POTASSIUM
  13. ONDANSETRON HYDROCHLORIDE. [Concomitant]
     Active Substance: ONDANSETRON HYDROCHLORIDE
  14. MIFAMURTIDE [Concomitant]
     Active Substance: MIFAMURTIDE
  15. NOZINAN [Concomitant]
     Active Substance: LEVOMEPROMAZINE
  16. PETHIDINE HYDROCHLORIDE [Concomitant]
     Active Substance: MEPERIDINE HYDROCHLORIDE

REACTIONS (5)
  - Hemiparesis [Unknown]
  - Dyskinesia [Unknown]
  - Speech disorder [Not Recovered/Not Resolved]
  - Encephalopathy [Recovered/Resolved]
  - Clumsiness [Unknown]
